FAERS Safety Report 4776610-9 (Version None)
Quarter: 2005Q3

REPORT INFORMATION
  Report Type: 
  Country: None (occurrence: None)
  Receive Date: 20050921
  Receipt Date: 20050909
  Transmission Date: 20060218
  Serious: Yes (Hospitalization, Other)
  Sender: FDA-Public Use
  Company Number: 2005125994

PATIENT
  Sex: Male
  Weight: 70.3075 kg

DRUGS (3)
  1. PHENYTOIN SODIUM [Suspect]
     Indication: CONVULSION
     Dosage: 500 MG (2 IN 1 D), ORAL
     Route: 048
     Dates: start: 20000101
  2. NEURONTIN [Suspect]
     Indication: CONVULSION
     Dosage: 2400 MG (800 MG, 3 IN 1 D), ORAL
     Route: 048
     Dates: start: 20030101
  3. KEPPRA [Suspect]
     Indication: CONVULSION
     Dosage: 2500 MG (2 IN 1 D), ORAL
     Route: 048
     Dates: start: 20030101

REACTIONS (7)
  - ANTICONVULSANT DRUG LEVEL INCREASED [None]
  - CEREBROVASCULAR ACCIDENT [None]
  - CONDITION AGGRAVATED [None]
  - CONVULSION [None]
  - GRAND MAL CONVULSION [None]
  - SPEECH DISORDER [None]
  - TREMOR [None]
